FAERS Safety Report 10160483 (Version 2)
Quarter: 2014Q2

REPORT INFORMATION
  Report Type: Spontaneous
  Country: US (occurrence: US)
  Receive Date: 20140508
  Receipt Date: 20140620
  Transmission Date: 20141212
  Serious: No
  Sender: FDA-Public Use
  Company Number: US-TEVA-480351USA

PATIENT
  Sex: Female

DRUGS (2)
  1. COPAXONE [Suspect]
     Dates: start: 20140415, end: 20140418
  2. COPAXONE [Suspect]

REACTIONS (4)
  - Chills [Recovered/Resolved]
  - Chills [Recovered/Resolved]
  - Muscle tightness [Unknown]
  - Prescribed underdose [Unknown]
